FAERS Safety Report 16817419 (Version 2)
Quarter: 2019Q4

REPORT INFORMATION
  Report Type: Spontaneous
  Country: US (occurrence: US)
  Receive Date: 20190917
  Receipt Date: 20191002
  Transmission Date: 20200122
  Serious: Yes (Hospitalization, Other)
  Sender: FDA-Public Use
  Company Number: US-PFIZER INC-2019398307

PATIENT
  Age: 74 Year
  Sex: Female

DRUGS (2)
  1. DOFETILIDE. [Suspect]
     Active Substance: DOFETILIDE
     Indication: ATRIAL FIBRILLATION
     Dosage: 1 DF, DAILY (1 PILL A DAY FOR OVER 2 YEARS)
  2. DOFETILIDE. [Suspect]
     Active Substance: DOFETILIDE
     Dosage: 2 DF, DAILY (2 PILLS A DAY)
     Dates: start: 20190903

REACTIONS (1)
  - Atrial fibrillation [Recovered/Resolved]

NARRATIVE: CASE EVENT DATE: 20190903
